FAERS Safety Report 19634087 (Version 2)
Quarter: 2021Q3

REPORT INFORMATION
  Report Type: Spontaneous
  Country: US (occurrence: US)
  Receive Date: 20210730
  Receipt Date: 20210902
  Transmission Date: 20211014
  Serious: No
  Sender: FDA-Public Use
  Company Number: US-SA-2021SA249751

PATIENT
  Sex: Female

DRUGS (1)
  1. DUPIXENT [Suspect]
     Active Substance: DUPILUMAB
     Indication: NASAL POLYPS
     Dosage: 300 MG, QOW
     Route: 058
     Dates: start: 202009

REACTIONS (5)
  - Pain in jaw [Unknown]
  - Ankle fracture [Unknown]
  - Tooth injury [Unknown]
  - Dental caries [Unknown]
  - Dizziness [Unknown]

NARRATIVE: CASE EVENT DATE: 202108
